FAERS Safety Report 7854626-3 (Version None)
Quarter: 2011Q4

REPORT INFORMATION
  Report Type: 
  Country: None (occurrence: None)
  Receive Date: 20111026
  Receipt Date: 20111024
  Transmission Date: 20120403
  Serious: Yes (Death, Other)
  Sender: FDA-Public Use
  Company Number: VE-PFIZER INC-2011246699

PATIENT
  Age: 91 Year
  Sex: Male

DRUGS (1)
  1. LIPITOR [Suspect]
     Indication: HYPERCHOLESTEROLAEMIA
     Dosage: UNK
     Route: 048
     Dates: start: 20100101

REACTIONS (3)
  - LEG AMPUTATION [None]
  - CARDIOVASCULAR INSUFFICIENCY [None]
  - RESPIRATORY ARREST [None]
